FAERS Safety Report 14947748 (Version 4)
Quarter: 2018Q3

REPORT INFORMATION
  Report Type: Report from Study
  Country: US (occurrence: US)
  Receive Date: 20180529
  Receipt Date: 20180723
  Transmission Date: 20181010
  Serious: Yes (Other)
  Sender: FDA-Public Use
  Company Number: US-BAYER-2018-029520

PATIENT
  Age: 66 Year
  Sex: Male

DRUGS (5)
  1. NEXAVAR [Suspect]
     Active Substance: SORAFENIB
     Indication: HEPATOCELLULAR CARCINOMA
     Dosage: 400 MG, BID
     Route: 048
     Dates: start: 20180202, end: 20180209
  2. NEXAVAR [Suspect]
     Active Substance: SORAFENIB
     Indication: HEPATOCELLULAR CARCINOMA
     Dosage: 400 MG, BID
     Route: 048
     Dates: start: 20180606, end: 201807
  3. LACTULOSE. [Concomitant]
     Active Substance: LACTULOSE
     Dosage: UNK
  4. NEXAVAR [Suspect]
     Active Substance: SORAFENIB
     Indication: HEPATOCELLULAR CARCINOMA
     Dosage: 400 MG, BID
     Route: 048
     Dates: start: 201802, end: 201802
  5. NEXAVAR [Suspect]
     Active Substance: SORAFENIB
     Indication: HEPATOCELLULAR CARCINOMA
     Dosage: 200 MG, BID
     Route: 048
     Dates: start: 20180530, end: 20180605

REACTIONS (15)
  - Blood bilirubin increased [None]
  - Weight decreased [None]
  - Nausea [None]
  - Liver function test increased [None]
  - Blood pressure increased [Recovered/Resolved]
  - Drug ineffective [None]
  - Angina pectoris [Recovered/Resolved]
  - Vomiting [None]
  - Decreased appetite [None]
  - Fatigue [None]
  - Aortic valve repair [None]
  - Atrial fibrillation [None]
  - Diarrhoea [None]
  - Skin exfoliation [Recovering/Resolving]
  - Asthenia [None]

NARRATIVE: CASE EVENT DATE: 2018
